FAERS Safety Report 5279305-0 (Version None)
Quarter: 2007Q1

REPORT INFORMATION
  Report Type: 
  Country: None (occurrence: None)
  Receive Date: 20070328
  Receipt Date: 20060522
  Transmission Date: 20070707
  Serious: No
  Sender: FDA-Public Use
  Company Number: US-AMGEN-KDL180343

PATIENT
  Sex: Female

DRUGS (6)
  1. NEULASTA [Suspect]
     Indication: CHEMOTHERAPY
     Route: 058
     Dates: start: 20060518
  2. TAGAMET [Concomitant]
  3. FUROSEMIDE [Concomitant]
  4. VALTREX [Concomitant]
  5. ZELNORM [Concomitant]
  6. ZOMETA [Concomitant]

REACTIONS (3)
  - BONE PAIN [None]
  - LIP SWELLING [None]
  - NEUROPATHY [None]
